FAERS Safety Report 19376704 (Version 2)
Quarter: 2021Q3

REPORT INFORMATION
  Report Type: Report from Study
  Country: US (occurrence: US)
  Receive Date: 20210604
  Receipt Date: 20210716
  Transmission Date: 20211014
  Serious: Yes (Death, Other)
  Sender: FDA-Public Use
  Company Number: US-GLAXOSMITHKLINE-US2021AMR117814

PATIENT
  Age: 67 Year
  Sex: Male
  Weight: 78 kg

DRUGS (2)
  1. BELANTAMAB MAFODOTIN. [Suspect]
     Active Substance: BELANTAMAB MAFODOTIN
     Indication: PRODUCT USED FOR UNKNOWN INDICATION
     Dosage: 200 MG (2.5MG/KG),UNK
     Dates: start: 20210415
  2. BELANTAMAB MAFODOTIN. [Suspect]
     Active Substance: BELANTAMAB MAFODOTIN
     Dosage: 200 MG (2.5MG/KG),UNK
     Dates: start: 20210506

REACTIONS (9)
  - Haemoperitoneum [Fatal]
  - Sepsis [Fatal]
  - Splenic rupture [Unknown]
  - Adverse drug reaction [Unknown]
  - Atelectasis [Unknown]
  - Acute kidney injury [Fatal]
  - Renal failure [Fatal]
  - Splenic haematoma [Fatal]
  - Encephalopathy [Fatal]

NARRATIVE: CASE EVENT DATE: 20210522
